FAERS Safety Report 5795196-3 (Version None)
Quarter: 2008Q2

REPORT INFORMATION
  Report Type: 
  Country: None (occurrence: None)
  Receive Date: 20080630
  Receipt Date: 20080625
  Transmission Date: 20081010
  Serious: No
  Sender: FDA-Public Use
  Company Number: JP-AVENTIS-200811807JP

PATIENT
  Age: 83 Year
  Sex: Female
  Weight: 43 kg

DRUGS (8)
  1. LASIX [Suspect]
     Route: 048
     Dates: end: 20080502
  2. LASIX [Suspect]
     Route: 048
     Dates: start: 20080503, end: 20080611
  3. FERROMIA                           /00023516/ [Concomitant]
     Indication: IRON DEFICIENCY ANAEMIA
     Route: 048
  4. OMEPRAL [Concomitant]
     Route: 048
     Dates: end: 20080502
  5. TAKEPRON [Concomitant]
     Route: 048
     Dates: start: 20080503
  6. ALDACTONE [Concomitant]
     Dosage: DOSE: 1 TBLS
     Route: 048
     Dates: start: 20080611
  7. ALOSENN                            /00476901/ [Concomitant]
     Indication: CONSTIPATION
     Route: 048
     Dates: start: 20080602
  8. GENTACIN [Concomitant]
     Route: 003
     Dates: start: 20080502

REACTIONS (1)
  - BLISTER [None]
